FAERS Safety Report 20093692 (Version 2)
Quarter: 2021Q4

REPORT INFORMATION
  Report Type: Report from Study
  Country: RU (occurrence: RU)
  Receive Date: 20211121
  Receipt Date: 20211204
  Transmission Date: 20220303
  Serious: Yes (Other)
  Sender: FDA-Public Use
  Company Number: RU-NOVARTISPH-NVSC2021RU263583

PATIENT
  Age: 44 Year
  Sex: Female

DRUGS (3)
  1. RIBOCICLIB SUCCINATE [Suspect]
     Active Substance: RIBOCICLIB SUCCINATE
     Indication: Breast cancer
     Dosage: 600 MG, (TABLET) (1-21 OF 28 DAY CYCLE)
     Route: 048
     Dates: start: 202104, end: 202110
  2. BUSERELIN [Concomitant]
     Active Substance: BUSERELIN
     Indication: Product used for unknown indication
     Dosage: 3.6 MG, QMO
     Route: 030
  3. ANASTROZOLE [Concomitant]
     Active Substance: ANASTROZOLE
     Indication: Product used for unknown indication
     Dosage: 1 MG, QD
     Route: 065

REACTIONS (7)
  - Metastases to lung [Unknown]
  - Metastases to ovary [Unknown]
  - Inguinal mass [Unknown]
  - Peripheral swelling [Unknown]
  - Metastases to lymph nodes [Unknown]
  - Dyspnoea [Unknown]
  - Swelling [Unknown]

NARRATIVE: CASE EVENT DATE: 20211001
